FAERS Safety Report 14746625 (Version 1)
Quarter: 2018Q2

REPORT INFORMATION
  Report Type: Report from Study
  Country: BR (occurrence: BR)
  Receive Date: 20180411
  Receipt Date: 20180411
  Transmission Date: 20180711
  Serious: Yes (Other)
  Sender: FDA-Public Use
  Company Number: PHHY2018BR057972

PATIENT
  Sex: Female

DRUGS (1)
  1. COSENTYX [Suspect]
     Active Substance: SECUKINUMAB
     Indication: PRODUCT USED FOR UNKNOWN INDICATION
     Route: 065

REACTIONS (7)
  - Infarction [Unknown]
  - Vomiting [Unknown]
  - Pyrexia [Unknown]
  - Cardiac disorder [Unknown]
  - Diarrhoea [Unknown]
  - Myocardial infarction [Unknown]
  - Malaise [Not Recovered/Not Resolved]
